FAERS Safety Report 24035914 (Version 3)
Quarter: 2024Q3

REPORT INFORMATION
  Report Type: Spontaneous
  Country: HU (occurrence: HU)
  Receive Date: 20240701
  Receipt Date: 20240905
  Transmission Date: 20241017
  Serious: Yes (Hospitalization)
  Sender: NOVARTIS
  Company Number: HU-002147023-NVSC2024HU132990

PATIENT
  Age: 63 Day
  Sex: Male
  Weight: 4.68 kg

DRUGS (4)
  1. ZOLGENSMA [Suspect]
     Active Substance: ONASEMNOGENE ABEPARVOVEC-XIOI
     Indication: Spinal muscular atrophy
     Dosage: 5.5 ML, ONCE/SINGLE (WAS PERFORMED WITHOUT COMPLICATIONS IN 60 MINUTES)
     Route: 042
     Dates: start: 20240306, end: 20240306
  2. ZOLGENSMA [Suspect]
     Active Substance: ONASEMNOGENE ABEPARVOVEC-XIOI
     Dosage: 8.3 ML, ONCE/SINGLE (WAS PERFORMED WITHOUT COMPLICATIONS IN 60 MINUTES)
     Route: 042
     Dates: start: 20240306, end: 20240306
  3. FAMOTIDINE [Concomitant]
     Active Substance: FAMOTIDINE
     Indication: Prophylaxis
     Dosage: 6 ML, BID (SYRUP)
     Route: 048
     Dates: start: 20240305, end: 20240510
  4. VIGANTOL [Concomitant]
     Indication: Vitamin D decreased
     Dosage: 2 DRP, QD (DROPS)
     Route: 048

REACTIONS (10)
  - Hepatic enzyme increased [Recovered/Resolved]
  - Troponin I increased [Recovered/Resolved]
  - Decreased appetite [Recovered/Resolved]
  - Hypophagia [Recovered/Resolved]
  - Pyrexia [Recovered/Resolved]
  - Abdominal distension [Recovering/Resolving]
  - Constipation [Recovering/Resolving]
  - Infantile spitting up [Recovered/Resolved]
  - Vitamin D decreased [Recovered/Resolved]
  - Blood lactate dehydrogenase increased [Recovered/Resolved]

NARRATIVE: CASE EVENT DATE: 20240307
